FAERS Safety Report 4266048-5 (Version None)
Quarter: 2004Q1

REPORT INFORMATION
  Report Type: 
  Country: None (occurrence: None)
  Receive Date: 20040106
  Receipt Date: 20031223
  Transmission Date: 20041129
  Serious: Yes (Hospitalization)
  Sender: FDA-Public Use
  Company Number: 233905

PATIENT
  Age: 53 Year
  Sex: Female

DRUGS (8)
  1. INSULATARD NPH HUMAN [Suspect]
     Indication: DIABETES MELLITUS
     Dosage: 30 IU, QD
     Dates: start: 20031030, end: 20031101
  2. INSULATARD NPH HUMAN [Suspect]
     Indication: DIABETES MELLITUS
     Dosage: 30 IU, QD
     Dates: start: 20031103
  3. NOVOFINE (30G) (NEEDLE) [Concomitant]
  4. PLENDIL [Concomitant]
  5. BLOPRESS (CANDESARTAN CILEXETIL) [Concomitant]
  6. METOPROLOL SUCCINATE [Concomitant]
  7. CIPROFLOXACIN [Concomitant]
  8. ASPIRIN [Concomitant]

REACTIONS (2)
  - HAEMATOMA [None]
  - URINARY TRACT INFECTION [None]
